FAERS Safety Report 4476543-1 (Version None)
Quarter: 2004Q4

REPORT INFORMATION
  Report Type: 
  Country: None (occurrence: None)
  Receive Date: 20041013
  Receipt Date: 20040924
  Transmission Date: 20050328
  Serious: Yes (Death, Hospitalization, Other)
  Sender: FDA-Public Use
  Company Number: USA030947889

PATIENT
  Age: 78 Year
  Sex: Male
  Weight: 55 kg

DRUGS (4)
  1. FORTEO [Suspect]
     Indication: OSTEOPOROSIS
     Dosage: 20 UG/1 DAY
     Dates: start: 20030201
  2. PREDNISONE [Concomitant]
  3. FOSAMAX [Concomitant]
  4. SEREVENT [Concomitant]

REACTIONS (9)
  - CONDITION AGGRAVATED [None]
  - EMPHYSEMA [None]
  - INJECTION SITE BURNING [None]
  - INJECTION SITE HAEMORRHAGE [None]
  - INJECTION SITE STINGING [None]
  - PHARMACEUTICAL PRODUCT COMPLAINT [None]
  - PNEUMONIA [None]
  - RESPIRATORY FAILURE [None]
  - WEIGHT DECREASED [None]
